FAERS Safety Report 5925910-5 (Version None)
Quarter: 2008Q4

REPORT INFORMATION
  Report Type: 
  Country: None (occurrence: None)
  Receive Date: 20081021
  Receipt Date: 20081009
  Transmission Date: 20090506
  Serious: Yes (Other)
  Sender: FDA-Public Use
  Company Number: FR-PFIZER INC-2008086347

PATIENT
  Age: 48 Year
  Sex: Male

DRUGS (1)
  1. CHAMPIX [Suspect]

REACTIONS (2)
  - MORBID THOUGHTS [None]
  - SUICIDAL IDEATION [None]
